FAERS Safety Report 7294232-5 (Version None)
Quarter: 2011Q1

REPORT INFORMATION
  Report Type: 
  Country: None (occurrence: None)
  Receive Date: 20110215
  Receipt Date: 20110209
  Transmission Date: 20110831
  Serious: Yes (Other)
  Sender: FDA-Public Use
  Company Number: US-JNJCH-2010018966

PATIENT
  Sex: Female
  Weight: 56.7 kg

DRUGS (1)
  1. LISTERINE WHITENING QUICK DISSOLVING STRIPS [Suspect]
     Indication: DENTAL CARE
     Dosage: TEXT:UNSPECIFIED AS DIRECTED
     Route: 048
     Dates: start: 20100818, end: 20100819

REACTIONS (2)
  - TOOTH DISORDER [None]
  - TOOTH FRACTURE [None]
